FAERS Safety Report 4276386-8 (Version None)
Quarter: 2004Q1

REPORT INFORMATION
  Report Type: 
  Country: None (occurrence: None)
  Receive Date: 20040116
  Receipt Date: 20040105
  Transmission Date: 20041129
  Serious: Yes (Other)
  Sender: FDA-Public Use
  Company Number: DE-JNJFOC-20031002457

PATIENT
  Age: 46 Year
  Sex: Male
  Weight: 91 kg

DRUGS (9)
  1. RISPERDAL CONSTA [Suspect]
     Indication: SCHIZOPHRENIA
     Dosage: SEE IMAGE
     Dates: start: 20030924
  2. RISPERDAL CONSTA [Suspect]
     Indication: SCHIZOPHRENIA
     Dosage: SEE IMAGE
     Dates: start: 20031022
  3. RISPERDAL CONSTA [Suspect]
     Indication: SCHIZOPHRENIA
     Dosage: SEE IMAGE
     Dates: start: 20031216
  4. RISPERDAL [Suspect]
     Indication: SCHIZOPHRENIA
     Dosage: SEE IMAGE
     Route: 048
     Dates: start: 20031010, end: 20031014
  5. RISPERDAL [Suspect]
     Indication: SCHIZOPHRENIA
     Dosage: SEE IMAGE
     Route: 048
     Dates: start: 20030901
  6. RISPERDAL [Suspect]
     Indication: SCHIZOPHRENIA
     Dosage: SEE IMAGE
     Route: 048
     Dates: start: 20031008
  7. ERGENYL CHRONO (ERGENYL CHRONO) [Suspect]
     Indication: SCHIZOPHRENIA, PARANOID TYPE
     Dosage: 2500 MG, 2 IN 1 DAY; SEE IMAGE
     Dates: start: 20031008
  8. ERGENYL CHRONO (ERGENYL CHRONO) [Suspect]
     Indication: SCHIZOPHRENIA, PARANOID TYPE
     Dosage: 2500 MG, 2 IN 1 DAY; SEE IMAGE
     Dates: start: 20031014
  9. ERGENYL CHRONO (ERGENYL CHRONO) [Suspect]
     Indication: SCHIZOPHRENIA, PARANOID TYPE
     Dosage: 2500 MG, 2 IN 1 DAY; SEE IMAGE
     Dates: start: 20031022

REACTIONS (2)
  - HEPATIC ENZYME INCREASED [None]
  - LEUKOPENIA [None]
